FAERS Safety Report 7688739-6 (Version None)
Quarter: 2011Q3

REPORT INFORMATION
  Report Type: 
  Country: None (occurrence: None)
  Receive Date: 20110817
  Receipt Date: 20110811
  Transmission Date: 20111222
  Serious: Yes (Hospitalization)
  Sender: FDA-Public Use
  Company Number: FR-B.I. PHARMACEUTICALS,INC./RIDGEFIELD-2011-RD-00142DE

PATIENT
  Sex: Male
  Weight: 58 kg

DRUGS (1)
  1. TIOTROPIUM BROMIDE [Suspect]
     Indication: CYSTIC FIBROSIS
     Dates: start: 20101117, end: 20110521

REACTIONS (1)
  - ABDOMINAL PAIN UPPER [None]
